FAERS Safety Report 6694390 (Version 2)
Quarter: 2013Q1

REPORT INFORMATION
  Report Type: Spontaneous
  Country: ES (occurrence: ES)
  Receive Date: 20080709
  Receipt Date: 20130306
  Transmission Date: 20140127
  Serious: Yes (Hospitalization)
  Sender: FDA-Public Use
  Company Number: ES-ELI_LILLY_AND_COMPANY-ES200806006365

PATIENT
  Age: 83 Year
  Sex: Female

DRUGS (8)
  1. FORSTEO [Suspect]
     Indication: OSTEOPOROSIS
     Dosage: 20 UG, UNK
     Route: 058
     Dates: start: 200803, end: 20080613
  2. FORSTEO [Suspect]
     Dosage: 20 UG, UNK
     Route: 058
     Dates: start: 20080620
  3. INSULIN [Concomitant]
     Indication: DIABETES MELLITUS
     Dosage: UNK, UNK
  4. ENALAPRIL [Concomitant]
     Indication: HYPERTENSION
     Dosage: UNK, UNK
  5. OMEPRAZOLE [Concomitant]
     Indication: PROPHYLAXIS
     Dosage: UNK, UNK
  6. CYMBALTA [Concomitant]
     Indication: DEPRESSION
     Dosage: UNK, UNK
  7. MIRTAZAPINE [Concomitant]
     Dosage: UNK, UNK
  8. MANNITOL [Concomitant]
     Dosage: UNK, UNK

REACTIONS (4)
  - Hallucination [Recovered/Resolved]
  - Somnolence [Recovered/Resolved]
  - Dementia [Not Recovered/Not Resolved]
  - Blood glucose abnormal [Unknown]
